FAERS Safety Report 22097774 (Version 1)
Quarter: 2023Q1

REPORT INFORMATION
  Report Type: Spontaneous
  Country: US (occurrence: US)
  Receive Date: 20230315
  Receipt Date: 20230315
  Transmission Date: 20230417
  Serious: No
  Sender: FDA-Public Use
  Company Number: US-PFIZER INC-PV202300046540

PATIENT
  Age: 56 Year
  Sex: Female
  Weight: 107.48 kg

DRUGS (5)
  1. AZULFIDINE [Suspect]
     Active Substance: SULFASALAZINE
     Dosage: 150 MG, 2X/DAY
     Route: 048
     Dates: start: 201801, end: 201804
  2. AZULFIDINE [Suspect]
     Active Substance: SULFASALAZINE
     Dosage: 3000 MG, DAILY
     Route: 048
     Dates: start: 20220209, end: 202211
  3. SIMPONI ARIA [Concomitant]
     Active Substance: GOLIMUMAB
     Dosage: UNK
     Dates: start: 20200826
  4. LYRICA [Concomitant]
     Active Substance: PREGABALIN
     Dosage: UNK
  5. ENBREL [Concomitant]
     Active Substance: ETANERCEPT
     Dosage: UNK
     Dates: start: 201611, end: 201804

REACTIONS (1)
  - Drug ineffective [Unknown]

NARRATIVE: CASE EVENT DATE: 20221101
